FAERS Safety Report 7487973-8 (Version None)
Quarter: 2011Q2

REPORT INFORMATION
  Report Type: 
  Country: None (occurrence: None)
  Receive Date: 20110518
  Receipt Date: 20110513
  Transmission Date: 20111010
  Serious: No
  Sender: FDA-Public Use
  Company Number: US-PFIZER INC-2011071949

PATIENT
  Sex: Female
  Weight: 87 kg

DRUGS (2)
  1. FEXOFENADINE [Concomitant]
     Dosage: UNK
  2. LIPITOR [Suspect]
     Indication: BLOOD CHOLESTEROL INCREASED
     Dosage: 10 MG, 1X/DAY
     Route: 048
     Dates: start: 20070101

REACTIONS (2)
  - PRODUCT ODOUR ABNORMAL [None]
  - HEADACHE [None]
